FAERS Safety Report 8987478 (Version 1)
Quarter: 2012Q4

REPORT INFORMATION
  Report Type: 
  Country: US (occurrence: US)
  Receive Date: 20121227
  Receipt Date: 20121227
  Transmission Date: 20130627
  Serious: No
  Sender: FDA-Public Use
  Company Number: US-009507513-1212USA008397

PATIENT
  Sex: Female

DRUGS (6)
  1. LOSARTAN POTASSIUM [Suspect]
     Indication: HYPERTENSION
     Dosage: 100 mg, qd
     Route: 048
     Dates: start: 20120314
  2. LOSARTAN POTASSIUM [Suspect]
     Dosage: 50 mg, qd
     Route: 048
     Dates: start: 2012
  3. LOSARTAN POTASSIUM [Suspect]
     Dosage: 100 mg, qd
     Route: 048
     Dates: start: 2012, end: 20121205
  4. HYDROCHLOROTHIAZIDE [Concomitant]
  5. ATENOLOL [Concomitant]
  6. VITAMIN D (UNSPECIFIED) [Concomitant]

REACTIONS (2)
  - Palpitations [Unknown]
  - Ear discomfort [Unknown]
